FAERS Safety Report 11709815 (Version 1)
Quarter: 2015Q4

REPORT INFORMATION
  Report Type: Spontaneous
  Country: US (occurrence: US)
  Receive Date: 20151104
  Receipt Date: 20151104
  Transmission Date: 20160304
  Serious: No
  Sender: FDA-Public Use
  Company Number: US-ELI_LILLY_AND_COMPANY-US201103008512

PATIENT
  Sex: Female

DRUGS (2)
  1. FORTEO [Suspect]
     Active Substance: TERIPARATIDE
     Dosage: UNK UNK, QD
     Route: 065
     Dates: start: 200905
  2. FORTEO [Suspect]
     Active Substance: TERIPARATIDE
     Dosage: UNK, OTHER
     Route: 065
     Dates: end: 201011

REACTIONS (3)
  - Pain [Unknown]
  - Fatigue [Unknown]
  - Lethargy [Unknown]
